FAERS Safety Report 7484873-4 (Version None)
Quarter: 2011Q2

REPORT INFORMATION
  Report Type: 
  Country: None (occurrence: None)
  Receive Date: 20110517
  Receipt Date: 20110510
  Transmission Date: 20111010
  Serious: Yes (Other)
  Sender: FDA-Public Use
  Company Number: A0815855A

PATIENT
  Age: 54 Year
  Sex: Male
  Weight: 109.1 kg

DRUGS (5)
  1. GLUCOPHAGE [Concomitant]
  2. GLUCOTROL XL [Concomitant]
  3. LOTREL [Concomitant]
  4. AVANDIA [Suspect]
     Dosage: 8MG PER DAY
     Route: 048
     Dates: start: 19991001
  5. AVANDAMET [Suspect]
     Dosage: 4MG TWICE PER DAY
     Route: 048
     Dates: start: 20040101, end: 20040101

REACTIONS (1)
  - ACUTE MYOCARDIAL INFARCTION [None]
